FAERS Safety Report 13785032 (Version 2)
Quarter: 2018Q2

REPORT INFORMATION
  Report Type: Report from Study
  Country: BR (occurrence: BR)
  Receive Date: 20170725
  Receipt Date: 20180424
  Transmission Date: 20180711
  Serious: Yes (Hospitalization, Other)
  Sender: FDA-Public Use
  Company Number: PHHY2017BR108233

PATIENT
  Age: 79 Year
  Sex: Female
  Weight: 90 kg

DRUGS (8)
  1. CLOPIDOGREL [Concomitant]
     Active Substance: CLOPIDOGREL BISULFATE
     Indication: PRODUCT USED FOR UNKNOWN INDICATION
     Route: 065
  2. ACLASTA [Suspect]
     Active Substance: ZOLEDRONIC ACID
     Indication: OSTEOPOROSIS
     Dosage: 1 DF, Q12MO
     Route: 042
     Dates: start: 201612
  3. LOSARTAN. [Concomitant]
     Active Substance: LOSARTAN
     Indication: HYPERTENSION
     Dosage: 2 YEARS AGO
     Route: 065
  4. ASA [Concomitant]
     Active Substance: ASPIRIN
     Indication: BLOOD DISORDER
     Dosage: 5 YEARS AGO
     Route: 065
  5. SULPAN [Concomitant]
     Active Substance: BROMAZEPAM\SULPIRIDE
     Indication: CEREBROVASCULAR ACCIDENT
     Route: 065
     Dates: start: 2005
  6. VASTAREL [Concomitant]
     Active Substance: TRIMETAZIDINE DIHYDROCHLORIDE
     Indication: HEART RATE INCREASED
     Dosage: 5 OR 6 YEARS AGO
     Route: 065
  7. VICOG [Concomitant]
     Active Substance: VINPOCETINE
     Indication: OXYGEN THERAPY
     Dosage: 4 YEARS AGO
     Route: 065
  8. GINKGO BILOBA [Concomitant]
     Active Substance: GINKGO
     Indication: CEREBRAL DISORDER
     Dosage: MORE THAN 5 YEARS
     Route: 065

REACTIONS (6)
  - Dyspnoea [Recovered/Resolved]
  - Pulmonary thrombosis [Unknown]
  - Movement disorder [Unknown]
  - Arthralgia [Not Recovered/Not Resolved]
  - Pneumonia [Recovered/Resolved]
  - Cough [Recovered/Resolved]

NARRATIVE: CASE EVENT DATE: 201706
